FAERS Safety Report 4329568-0 (Version None)
Quarter: 2004Q2

REPORT INFORMATION
  Report Type: 
  Country: None (occurrence: None)
  Receive Date: 20040401
  Receipt Date: 20030910
  Transmission Date: 20050107
  Serious: Yes (Hospitalization)
  Sender: FDA-Public Use
  Company Number: US-ROCHE-346704

PATIENT
  Age: 22 Year
  Sex: Male
  Weight: 64.6 kg

DRUGS (1)
  1. ACCUTANE [Suspect]
     Indication: ACNE
     Route: 048
     Dates: start: 19960409

REACTIONS (44)
  - ANGER [None]
  - ANOREXIA [None]
  - ANXIETY [None]
  - ARTHRALGIA [None]
  - BONE PAIN [None]
  - BUTTOCK PAIN [None]
  - COGNITIVE DISORDER [None]
  - CONFUSIONAL STATE [None]
  - DECREASED APPETITE [None]
  - DEPRESSION [None]
  - DIARRHOEA [None]
  - DISTURBANCE IN ATTENTION [None]
  - DIZZINESS [None]
  - ECONOMIC PROBLEM [None]
  - FATIGUE [None]
  - HEADACHE [None]
  - HEART RATE INCREASED [None]
  - HYPERTRIGLYCERIDAEMIA [None]
  - INJURY [None]
  - INSOMNIA [None]
  - LETHARGY [None]
  - MEMORY IMPAIRMENT [None]
  - NAUSEA [None]
  - NEGATIVE THOUGHTS [None]
  - NEURITIS [None]
  - PANIC ATTACK [None]
  - PARANOIA [None]
  - PAROSMIA [None]
  - PERSONALITY CHANGE [None]
  - PSYCHIATRIC SYMPTOM [None]
  - PSYCHOTIC DISORDER [None]
  - SCHIZOPHRENIA [None]
  - SCHIZOTYPAL PERSONALITY DISORDER [None]
  - SCIATICA [None]
  - SELF-INJURIOUS IDEATION [None]
  - SEXUAL DYSFUNCTION [None]
  - SOMNOLENCE [None]
  - STRESS SYMPTOMS [None]
  - TENSION [None]
  - TESTICULAR PAIN [None]
  - TINNITUS [None]
  - VISUAL ACUITY REDUCED [None]
  - VOMITING [None]
  - WEIGHT DECREASED [None]
